FAERS Safety Report 6018422-4 (Version None)
Quarter: 2008Q4

REPORT INFORMATION
  Report Type: 
  Country: None (occurrence: None)
  Receive Date: 20081223
  Receipt Date: 20081216
  Transmission Date: 20090506
  Serious: Yes (Other)
  Sender: FDA-Public Use
  Company Number: US-JNJFOC-20081204725

PATIENT
  Age: 21 Year
  Sex: Male
  Weight: 77.11 kg

DRUGS (2)
  1. TYLENOL (CAPLET) [Suspect]
     Route: 048
  2. TYLENOL (CAPLET) [Suspect]
     Indication: MIGRAINE
     Route: 048

REACTIONS (3)
  - FEELING COLD [None]
  - HAEMATEMESIS [None]
  - INCORRECT DOSE ADMINISTERED [None]
